FAERS Safety Report 5804461-2 (Version None)
Quarter: 2008Q3

REPORT INFORMATION
  Report Type: 
  Country: None (occurrence: None)
  Receive Date: 20080707
  Receipt Date: 20080707
  Transmission Date: 20090109
  Serious: Yes (Life-Threatening, Hospitalization)
  Sender: FDA-Public Use
  Company Number: None

PATIENT
  Sex: Male
  Weight: 64.8644 kg

DRUGS (2)
  1. REMICADE [Suspect]
     Indication: RHEUMATOID ARTHRITIS
     Dosage: VARYING DOSESE Q8WKS IV DRIP
     Route: 041
     Dates: start: 20030101, end: 20070701
  2. ORENCIA [Suspect]
     Dosage: 750 MG QMO IV DRIP
     Route: 041
     Dates: start: 20070830, end: 20080525

REACTIONS (4)
  - CARDIAC FAILURE CONGESTIVE [None]
  - LUNG CANCER METASTATIC [None]
  - METASTASES TO SPINE [None]
  - PLEURAL EFFUSION [None]
